FAERS Safety Report 22141120 (Version 3)
Quarter: 2023Q2

REPORT INFORMATION
  Report Type: Spontaneous
  Country: GB (occurrence: GB)
  Receive Date: 20230327
  Receipt Date: 20230411
  Transmission Date: 20230722
  Serious: Yes (Hospitalization, Other)
  Sender: FDA-Public Use
  Company Number: GB-MYLANLABS-2023M1029183

PATIENT
  Age: 40 Year
  Sex: Male

DRUGS (17)
  1. CLOZARIL [Suspect]
     Active Substance: CLOZAPINE
     Indication: Schizophrenia
     Dosage: 25 MILLIGRAM
     Route: 048
     Dates: start: 20220121
  2. CLOZARIL [Suspect]
     Active Substance: CLOZAPINE
     Dosage: 325 MILLIGRAM, QD
     Route: 048
     Dates: end: 20230119
  3. CLOZARIL [Suspect]
     Active Substance: CLOZAPINE
     Dosage: UNK
     Route: 048
     Dates: start: 20230324
  4. ZOPICLONE [Suspect]
     Active Substance: ZOPICLONE
     Indication: Insomnia
     Dosage: 7.5 MILLIGRAM (PRN), EVERY 20 HOURS, GIVE JUST BEFORE BED
     Route: 048
     Dates: end: 20230227
  5. LORAZEPAM [Suspect]
     Active Substance: LORAZEPAM
     Indication: Anxiety
     Dosage: 1 MILLIGRAM, WHEN REQUIRED
     Route: 048
     Dates: end: 20230223
  6. LORAZEPAM [Suspect]
     Active Substance: LORAZEPAM
     Dosage: 1 MILLIGRAM (ONCE IN 2 HOURS)
     Route: 048
     Dates: start: 20230310
  7. ZUCLOPENTHIXOL [Suspect]
     Active Substance: ZUCLOPENTHIXOL
     Indication: Psychotic disorder
     Dosage: 10 MILLIGRAM, TID
     Route: 048
     Dates: start: 20230217
  8. ZUCLOPENTHIXOL [Suspect]
     Active Substance: ZUCLOPENTHIXOL
     Indication: Schizophrenia
  9. ZUCLOPENTHIXOL DECANOATE [Suspect]
     Active Substance: ZUCLOPENTHIXOL DECANOATE
     Indication: Psychotic disorder
     Dosage: 400 MILLIGRAM, QW
     Route: 030
     Dates: start: 20230307, end: 20230309
  10. ZUCLOPENTHIXOL DECANOATE [Suspect]
     Active Substance: ZUCLOPENTHIXOL DECANOATE
     Indication: Schizophrenia
  11. BISOPROLOL [Concomitant]
     Active Substance: BISOPROLOL
     Dosage: 5 MILLIGRAM, QD
     Route: 065
  12. CHOLECALCIFEROL [Concomitant]
     Active Substance: CHOLECALCIFEROL
     Dosage: 800 INTERNATIONAL UNIT, QD
     Route: 065
  13. AMISULPRIDE [Concomitant]
     Active Substance: AMISULPRIDE
     Dosage: 100 MILLIGRAM, QD
     Route: 065
  14. CLONAZEPAM [Concomitant]
     Active Substance: CLONAZEPAM
     Dosage: 1 MILLIGRAM, QID
     Route: 048
     Dates: start: 20230310, end: 20230314
  15. CLONAZEPAM [Concomitant]
     Active Substance: CLONAZEPAM
     Dosage: 1 MILLIGRAM, TID
     Route: 048
     Dates: start: 20230314
  16. NICOTINE [Concomitant]
     Active Substance: NICOTINE
     Dosage: UNK, INHALE WHEN URGE TO SMOKE  SHOULD NOT EXCEEED 6 CATRIDGES DAILY
     Route: 055
  17. LORAZEPAM [Concomitant]
     Active Substance: LORAZEPAM
     Indication: Agitation
     Dosage: 1 MILLIGRAM, WHEN REQUIRED UPTO  EVERY 1 HOUR MAXIMUM 2 MG 24 HROURS
     Route: 030
     Dates: start: 20230310

REACTIONS (6)
  - Atrial fibrillation [Unknown]
  - Tachycardia [Unknown]
  - Sexual dysfunction [Unknown]
  - General physical health deterioration [Unknown]
  - Differential white blood cell count abnormal [Unknown]
  - Drug monitoring procedure not performed [Unknown]

NARRATIVE: CASE EVENT DATE: 20230404
